APPROVED DRUG PRODUCT: BICALUTAMIDE
Active Ingredient: BICALUTAMIDE
Strength: 50MG
Dosage Form/Route: TABLET;ORAL
Application: A200274 | Product #001
Applicant: APOTEX INC
Approved: May 21, 2015 | RLD: No | RS: No | Type: DISCN